FAERS Safety Report 5792703-1 (Version None)
Quarter: 2008Q2

REPORT INFORMATION
  Report Type: 
  Country: None (occurrence: None)
  Receive Date: 20080624
  Receipt Date: 20080610
  Transmission Date: 20081010
  Serious: Yes (Other)
  Sender: FDA-Public Use
  Company Number: 49293

PATIENT
  Age: 39 Year
  Sex: Female

DRUGS (1)
  1. DICYCLOMINE HCL [Suspect]
     Dates: start: 20080610

REACTIONS (2)
  - INCORRECT ROUTE OF DRUG ADMINISTRATION [None]
  - MEDICATION ERROR [None]
